FAERS Safety Report 18549993 (Version 3)
Quarter: 2020Q4

REPORT INFORMATION
  Report Type: Report from Study
  Country: BR (occurrence: BR)
  Receive Date: 20201126
  Receipt Date: 20201221
  Transmission Date: 20210114
  Serious: Yes (Other)
  Sender: FDA-Public Use
  Company Number: NVSC2020BR311469

PATIENT
  Age: 48 Year
  Sex: Male

DRUGS (6)
  1. NIMESULIDE [Concomitant]
     Active Substance: NIMESULIDE
     Indication: ANKYLOSING SPONDYLITIS
     Dosage: 1 DF, QD (STARTED ABOUT 2 YEARS AGO)
     Route: 048
  2. FOLIC ACID. [Concomitant]
     Active Substance: FOLIC ACID
     Indication: PRODUCT USED FOR UNKNOWN INDICATION
     Dosage: 1 DF, QW (AFTER METHOTREXATE) (STARTED ABOUT 2 YEARS AGO)
     Route: 048
  3. COSENTYX [Suspect]
     Active Substance: SECUKINUMAB
     Indication: ANKYLOSING SPONDYLITIS
     Dosage: 150 MG, QMO
     Route: 058
     Dates: start: 20201023
  4. AMITRIPTYLINE [Concomitant]
     Active Substance: AMITRIPTYLINE
     Indication: ANKYLOSING SPONDYLITIS
     Dosage: 1 DF, BID (STARTED ABOUT 2 YEARS AGO)
     Route: 048
  5. METHOTREXATE. [Concomitant]
     Active Substance: METHOTREXATE
     Indication: ANKYLOSING SPONDYLITIS
     Dosage: 8 DF, QW (STARTED ABOUT 2 YEARS AGO)
     Route: 048
  6. DIPIRONE [Concomitant]
     Active Substance: METAMIZOLE SODIUM
     Indication: ANKYLOSING SPONDYLITIS
     Dosage: 1 DF, BID (STARTED ABOUT 2 YEARS AGO)
     Route: 048

REACTIONS (2)
  - Thrombosis [Recovered/Resolved]
  - Product expiration date issue [Unknown]

NARRATIVE: CASE EVENT DATE: 20201114
